FAERS Safety Report 9250805 (Version 1)
Quarter: 2013Q1

REPORT INFORMATION
  Report Type: Spontaneous
  Country: US (occurrence: None)
  Receive Date: 20130305
  Receipt Date: 20130305
  Transmission Date: 20140127
  Serious: Yes (Disabling, Other)
  Sender: FDA-Public Use
  Company Number: 163-21880-12040243

PATIENT
  Age: 60 Year
  Sex: Male

DRUGS (18)
  1. REVLIMID [Suspect]
     Indication: PLASMA CELL MYELOMA
     Dosage: 25 MG, 1 IN 1 D, PO
     Route: 048
     Dates: start: 200811, end: 200908
  2. VELCADE (BORTEZOMIB) (INJECTION FOR INFUSION) [Concomitant]
     Dosage: 2.509 MG, IV
     Route: 042
  3. DEXAMETHASONE (DEXAMETHASONE) (UNKNOWN) [Concomitant]
     Dosage: 12 MG, SAT/SUN, UNK
  4. AMBIEN (ZOLPIDEM TARTRATE) (TABLETS) [Concomitant]
     Dosage: 10 MG, HS, PO
     Route: 048
  5. CALTRATE (CALCIUM CARBONATE) (UNKNOWN) [Concomitant]
     Dosage: 3600 MG, 3 IN 1 D, PO
     Route: 048
  6. ALLOPURINOL (ALLOPURINOL) (UNKNOWN) [Concomitant]
  7. ASPIRIN (ACETYLSALICYLIC ACID) (CAPSULES) [Concomitant]
     Dosage: 162 MG, 1 IN 1 D, PO
     Route: 048
  8. METFORMIN (METFORMIN) (UNKNOWN) [Concomitant]
     Dosage: PO
     Route: 048
  9. ZOLEDRONIC ACID (ZOLEDRONIC ACID) (SOLUTION) [Concomitant]
     Dosage: 4 MG, IV
     Route: 042
  10. OXYCONTIN (OXYCODONE HYDROCHLORIDE) (TABLETS) [Concomitant]
     Dosage: 20 MG, 1 IN 12 HR, PO
     Route: 048
  11. OXYCONTIN (OXYCODONE HYDROCHLORIDE) (TABLETS) [Concomitant]
     Dosage: 20 MG, 1 IN 12 HR, PO
     Route: 048
  12. OXYCONTIN (OXYCODONE HYDROCHLORIDE) (TABLETS) [Concomitant]
     Dosage: 20 MG, 1 IN 12 HR, PO
     Route: 048
  13. OXYCODONE (OXYCODONE) (TABLETS) [Concomitant]
     Dosage: 5 MG, BID - Q6HR PRN, PO
     Route: 048
  14. OXYCODONE (OXYCODONE) (TABLETS) [Concomitant]
     Dosage: 5 MG, BID - Q6HR PRN, PO
     Route: 048
  15. ZOFRAN (ONDANSETRON HYDROCHLORIDE) (TABLETS) [Concomitant]
     Dosage: 8 MG, BID 30 MIN BEFORE CHEMO AND Q8HR PRN, PO
     Route: 048
  16. LANTUS (INSULIN GLARGINE) (UNKNOWN) [Concomitant]
     Dosage: 3 ML, HS, SC
     Route: 058
  17. BENDAMUSTINE (BENDAMUSTINE) (UNKNOWN) [Concomitant]
     Dates: start: 20120524
  18. PEGFILGRASTIM (PEGFILGRASTIM) (UNKNOWN) [Concomitant]

REACTIONS (5)
  - Neutropenia [None]
  - Platelet count decreased [None]
  - White blood cell count decreased [None]
  - Arthralgia [None]
  - Plasma cell myeloma [None]
